FAERS Safety Report 8295352-9 (Version None)
Quarter: 2012Q2

REPORT INFORMATION
  Report Type: 
  Country: None (occurrence: None)
  Receive Date: 20120418
  Receipt Date: 20120326
  Transmission Date: 20120825
  Serious: Yes (Hospitalization)
  Sender: FDA-Public Use
  Company Number: PT-BAXTER-2012BH007714

PATIENT
  Age: 58 Year
  Sex: Female

DRUGS (15)
  1. OMEPRAZOLE [Concomitant]
     Dosage: 602ID
     Route: 065
  2. EZETIMIBE [Concomitant]
     Dosage: 10/40
     Route: 065
     Dates: start: 20080601
  3. FUROSEMIDE [Concomitant]
     Dosage: 2+1
     Route: 065
  4. LORENIN [Concomitant]
     Dosage: 2.5
     Route: 065
  5. COMPLEX B                          /00653501/ [Concomitant]
     Route: 065
  6. NITROGLYCERIN [Concomitant]
     Route: 065
  7. SEVELAMER [Concomitant]
     Route: 065
  8. EPOETIN BETA [Concomitant]
  9. CINACALCET HYDROCHLORIDE [Concomitant]
     Dosage: 60LID
     Route: 065
  10. GLICLAZIDE [Concomitant]
     Route: 065
  11. PHYSIOSOL IN PLASTIC CONTAINER [Suspect]
     Dosage: 2,5L VIAFLEX APD 10L/DAY
     Route: 033
     Dates: start: 20060601
  12. EPOETIN BETA [Concomitant]
     Route: 065
  13. EXTRANEAL [Suspect]
     Dosage: 2L VIAFLEX APD 2L/DAY
     Route: 033
     Dates: start: 20060601
  14. FOLIC ACID [Concomitant]
     Route: 065
  15. ASPIRIN [Concomitant]
     Dosage: 1
     Route: 065

REACTIONS (1)
  - PERITONITIS BACTERIAL [None]
